FAERS Safety Report 11678571 (Version 1)
Quarter: 2015Q4

REPORT INFORMATION
  Report Type: Spontaneous
  Country: PT (occurrence: PT)
  Receive Date: 20151028
  Receipt Date: 20151028
  Transmission Date: 20160304
  Serious: Yes (Death)
  Sender: FDA-Public Use
  Company Number: PT-SA-2015SA168007

PATIENT
  Age: 81 Year
  Sex: Male

DRUGS (11)
  1. CRESTOR [Concomitant]
     Active Substance: ROSUVASTATIN CALCIUM
     Dosage: DOSAGE AND POSOLOGY UNKNOWN?5 MG
     Route: 048
  2. EPOETIN ALFA [Concomitant]
     Active Substance: ERYTHROPOIETIN
     Route: 042
  3. SINEMET [Concomitant]
     Active Substance: CARBIDOPA\LEVODOPA
     Dosage: 25/100?(0+1+1+1)
     Route: 048
  4. CARTIA XT [Concomitant]
     Active Substance: DILTIAZEM HYDROCHLORIDE
     Dosage: 100 MG
     Route: 048
  5. VARFINE [Concomitant]
     Active Substance: WARFARIN SODIUM
     Indication: THROMBOSIS PROPHYLAXIS
     Dosage: CAUSED HEMORRHAGE
     Dates: end: 20150117
  6. LASIX [Suspect]
     Active Substance: FUROSEMIDE
     Dosage: }2 TABLETS ON EMPTY STOMACH AND ? AT LUNCH
     Route: 048
     Dates: end: 20150117
  7. CORDARONE [Concomitant]
     Active Substance: AMIODARONE HYDROCHLORIDE
     Route: 048
  8. TRIATEC [Concomitant]
     Active Substance: RAMIPRIL
     Dosage: DOSAGE AND POSOLOGY UNKNOWN
     Route: 048
  9. CARVEDILOL. [Concomitant]
     Active Substance: CARVEDILOL
     Route: 048
  10. FOLICIL [Concomitant]
     Active Substance: FOLIC ACID
     Dosage: 1 MG + 90 MG
     Route: 048
  11. VARFINE [Concomitant]
     Active Substance: WARFARIN SODIUM
     Indication: THROMBOSIS PROPHYLAXIS
     Dosage: 5 MG
     Route: 048

REACTIONS (2)
  - Chronic kidney disease [Fatal]
  - Death [Fatal]

NARRATIVE: CASE EVENT DATE: 20150117
